FAERS Safety Report 11154553 (Version 1)
Quarter: 2015Q2

REPORT INFORMATION
  Report Type: Spontaneous
  Country: US (occurrence: None)
  Receive Date: 20150601
  Receipt Date: 20150601
  Transmission Date: 20150821
  Serious: Yes (Death, Hospitalization)
  Sender: FDA-Public Use
  Company Number: None

PATIENT
  Age: 60 Year
  Sex: Female
  Weight: 76.6 kg

DRUGS (5)
  1. ERBITUX [Suspect]
     Active Substance: CETUXIMAB
     Indication: PERICARDIAL EFFUSION
     Dates: start: 20150501
  2. ERBITUX [Suspect]
     Active Substance: CETUXIMAB
     Indication: EMBOLISM
     Dates: start: 20150501
  3. ERBITUX [Suspect]
     Active Substance: CETUXIMAB
     Indication: BENIGN NEOPLASM
     Dates: start: 20150501
  4. ERBITUX [Suspect]
     Active Substance: CETUXIMAB
     Indication: SINUS TACHYCARDIA
     Dates: start: 20150501
  5. IRINOTECAN [Suspect]
     Active Substance: IRINOTECAN
     Dates: start: 20150501

REACTIONS (6)
  - Atrial fibrillation [None]
  - Deep vein thrombosis [None]
  - Encephalopathy [None]
  - Pericardial effusion [None]
  - Respiratory failure [None]
  - Pulmonary embolism [None]

NARRATIVE: CASE EVENT DATE: 20150514
